FAERS Safety Report 21936338 (Version 5)
Quarter: 2023Q4

REPORT INFORMATION
  Report Type: Spontaneous
  Country: US (occurrence: US)
  Receive Date: 20230201
  Receipt Date: 20231010
  Transmission Date: 20240109
  Serious: Yes (Hospitalization, Other)
  Sender: FDA-Public Use
  Company Number: US-BRISTOL-MYERS SQUIBB COMPANY-2023-015172

PATIENT
  Age: 77 Year
  Sex: Female

DRUGS (2)
  1. LENALIDOMIDE [Suspect]
     Active Substance: LENALIDOMIDE
     Indication: Plasma cell myeloma
     Dosage: FREQUENCY: TAKE 1 CAPSULE BY MOUTH EVERY DAY FOR 21 DAYS FOLLOWED BY 7 DAYS OFF
     Route: 048
     Dates: start: 20220711, end: 20230329
  2. LENALIDOMIDE [Suspect]
     Active Substance: LENALIDOMIDE
     Dates: start: 20230404

REACTIONS (6)
  - Bronchitis [Unknown]
  - Gastrointestinal disorder [Recovered/Resolved]
  - Aortic valve stenosis [Recovered/Resolved]
  - Condition aggravated [Recovered/Resolved]
  - COVID-19 [Unknown]
  - Bone pain [Unknown]

NARRATIVE: CASE EVENT DATE: 20230901
